FAERS Safety Report 15657756 (Version 3)
Quarter: 2019Q2

REPORT INFORMATION
  Report Type: Spontaneous
  Country: PR (occurrence: PR)
  Receive Date: 20181126
  Receipt Date: 20190528
  Transmission Date: 20190711
  Serious: Yes (Other)
  Sender: FDA-Public Use
  Company Number: PR-PFIZER INC-2018471829

PATIENT
  Age: 77 Year
  Sex: Male

DRUGS (2)
  1. ROBITUSSIN COUGH AND CHEST CONGESTION SUGAR FREE DM [Suspect]
     Active Substance: DEXTROMETHORPHAN HYDROBROMIDE\GUAIFENESIN
     Indication: RESPIRATORY TRACT CONGESTION
     Dosage: 10 MG, 2X/DAY
  2. ROBITUSSIN COUGH AND CHEST CONGESTION SUGAR FREE DM [Suspect]
     Active Substance: DEXTROMETHORPHAN HYDROBROMIDE\GUAIFENESIN
     Indication: NASOPHARYNGITIS

REACTIONS (3)
  - Blood glucose increased [Recovering/Resolving]
  - Influenza [Recovering/Resolving]
  - Abdominal discomfort [Recovering/Resolving]
